FAERS Safety Report 25731536 (Version 1)
Quarter: 2025Q3

REPORT INFORMATION
  Report Type: Spontaneous
  Country: US (occurrence: None)
  Receive Date: 20250827
  Receipt Date: 20250827
  Transmission Date: 20251021
  Serious: Yes (Death, Hospitalization)
  Sender: FDA-CTU
  Company Number: None

PATIENT
  Age: 67 Year
  Sex: Female
  Weight: 42.75 kg

DRUGS (3)
  1. INVEGA SUSTENNA [Suspect]
     Active Substance: PALIPERIDONE PALMITATE
     Indication: Bipolar disorder
     Route: 030
     Dates: start: 20250715, end: 20250821
  2. INVEGA SUSTENNA [Suspect]
     Active Substance: PALIPERIDONE PALMITATE
     Indication: Psychotic disorder
  3. Metorolol 25 mg [Concomitant]

REACTIONS (10)
  - Lethargy [None]
  - Chronic obstructive pulmonary disease [None]
  - Muscle twitching [None]
  - Balance disorder [None]
  - Fall [None]
  - Fatigue [None]
  - Somnolence [None]
  - General physical health deterioration [None]
  - Blood pressure decreased [None]
  - Incorrect dose administered [None]

NARRATIVE: CASE EVENT DATE: 20250823
